FAERS Safety Report 15250349 (Version 3)
Quarter: 2018Q3

REPORT INFORMATION
  Report Type: Spontaneous
  Country: NZ (occurrence: NZ)
  Receive Date: 20180807
  Receipt Date: 20180823
  Transmission Date: 20181010
  Serious: Yes (Hospitalization, Other)
  Sender: FDA-Public Use
  Company Number: NZ-ALLERGAN-1838744US

PATIENT
  Sex: Female

DRUGS (1)
  1. BELKYRA [Suspect]
     Active Substance: DEOXYCHOLIC ACID
     Indication: PRODUCT USED FOR UNKNOWN INDICATION
     Dosage: UNK, SINGLE
     Route: 058

REACTIONS (4)
  - Pancreatic carcinoma [Unknown]
  - Pain [Unknown]
  - Pancreatitis [Unknown]
  - Blood pressure increased [Recovering/Resolving]
